FAERS Safety Report 15763615 (Version 2)
Quarter: 2019Q1

REPORT INFORMATION
  Report Type: Spontaneous
  Country: PT (occurrence: PT)
  Receive Date: 20181227
  Receipt Date: 20190121
  Transmission Date: 20190417
  Serious: Yes (Life-Threatening, Hospitalization)
  Sender: FDA-Public Use
  Company Number: PT-BRISTOL-MYERS SQUIBB COMPANY-BMS-2018-121055

PATIENT
  Age: 73 Year
  Sex: Female
  Weight: 60 kg

DRUGS (7)
  1. ZOMARIST                           /06202201/ [Suspect]
     Active Substance: METFORMIN HYDROCHLORIDE\VILDAGLIPTIN
     Indication: DIABETES MELLITUS
     Dosage: 1 DF, 1000 MG PLUS 50 MG IN 12 HOURS
     Route: 048
  2. DEXAVAL [Concomitant]
     Indication: CORNEAL TRANSPLANT
     Dosage: UNK
     Route: 065
     Dates: start: 201811
  3. FLOXEDOL [Concomitant]
     Indication: CORNEAL TRANSPLANT
     Dosage: UNK
     Route: 047
     Dates: start: 201811
  4. SIMVASTATIN. [Concomitant]
     Active Substance: SIMVASTATIN
     Indication: DYSLIPIDAEMIA
     Dosage: 1 DF, UNK
     Route: 065
  5. OLMESARTANA + HIDROCLOROTIAZIDA [Concomitant]
     Active Substance: HYDROCHLOROTHIAZIDE\OLMESARTAN MEDOXOMIL
     Indication: HYPERTENSION
     Dosage: 1 DF, UNK
     Route: 065
  6. METFORMIN W/VILDAGLIPTIN [Suspect]
     Active Substance: METFORMIN HYDROCHLORIDE\VILDAGLIPTIN
     Indication: DIABETES MELLITUS
     Dosage: 1 DF, Q12H
     Route: 048
  7. METFORMIN HYDROCHLORIDE. [Suspect]
     Active Substance: METFORMIN HYDROCHLORIDE
     Indication: DIABETES MELLITUS
     Dosage: 1000 MG, UNK
     Route: 048
     Dates: end: 20181122

REACTIONS (9)
  - Vomiting [Recovering/Resolving]
  - Urine output decreased [Recovering/Resolving]
  - Blood potassium increased [Recovering/Resolving]
  - Blood urea increased [Recovering/Resolving]
  - Hyperlactacidaemia [Recovering/Resolving]
  - Blood phosphorus increased [Recovering/Resolving]
  - Acetonaemia [Recovering/Resolving]
  - Abdominal pain [Recovering/Resolving]
  - Blood creatinine increased [Recovering/Resolving]

NARRATIVE: CASE EVENT DATE: 20181121
